FAERS Safety Report 8778109 (Version 1)
Quarter: 2012Q4

REPORT INFORMATION
  Report Type: 
  Country: US (occurrence: US)
  Receive Date: 20120912
  Receipt Date: 20120912
  Transmission Date: 20130627
  Serious: No
  Sender: FDA-Public Use
  Company Number: US-ASTRAZENECA-2012SE58083

PATIENT
  Age: 70 Year
  Sex: Female
  Weight: 54.9 kg

DRUGS (15)
  1. NEXIUM [Suspect]
     Indication: GASTRITIS
     Dosage: ONCE DAILY
     Route: 048
     Dates: start: 2002, end: 2002
  2. NEXIUM [Suspect]
     Indication: GASTROOESOPHAGEAL REFLUX DISEASE
     Dosage: ONCE DAILY
     Route: 048
     Dates: start: 2002, end: 2002
  3. NEXIUM [Suspect]
     Indication: DYSPHONIA
     Dosage: ONCE DAILY
     Route: 048
     Dates: start: 2002, end: 2002
  4. NEXIUM [Suspect]
     Indication: GASTROINTESTINAL DISORDER
     Dosage: ONCE DAILY
     Route: 048
     Dates: start: 2002, end: 2002
  5. NEXIUM [Suspect]
     Indication: GASTRITIS
     Route: 048
  6. NEXIUM [Suspect]
     Indication: GASTROOESOPHAGEAL REFLUX DISEASE
     Route: 048
  7. NEXIUM [Suspect]
     Indication: DYSPHONIA
     Route: 048
  8. NEXIUM [Suspect]
     Indication: GASTROINTESTINAL DISORDER
     Route: 048
  9. OMEPRAZOLE [Suspect]
     Indication: GASTROOESOPHAGEAL REFLUX DISEASE
     Route: 048
  10. OMEPRAZOLE [Suspect]
     Indication: DYSPHONIA
     Route: 048
  11. OMEPRAZOLE [Suspect]
     Indication: GASTROOESOPHAGEAL REFLUX DISEASE
     Route: 048
     Dates: start: 2011, end: 20120713
  12. OMEPRAZOLE [Suspect]
     Indication: DYSPHONIA
     Route: 048
     Dates: start: 2011, end: 20120713
  13. OMEPRAZOLE [Suspect]
     Indication: GASTROOESOPHAGEAL REFLUX DISEASE
     Route: 048
     Dates: start: 20120713, end: 201208
  14. OMEPRAZOLE [Suspect]
     Indication: DYSPHONIA
     Route: 048
     Dates: start: 20120713, end: 201208
  15. AMILORIDE [Concomitant]
     Indication: LIDDLE^S SYNDROME

REACTIONS (8)
  - Coeliac disease [Unknown]
  - Gallbladder disorder [Unknown]
  - Gastrointestinal disorder [Unknown]
  - Blood calcium decreased [Unknown]
  - Blood potassium decreased [Unknown]
  - Dysphonia [Unknown]
  - Drug ineffective [Unknown]
  - Off label use [Unknown]
